FAERS Safety Report 9155251 (Version 1)
Quarter: 2013Q1

REPORT INFORMATION
  Report Type: Spontaneous
  Country: FR (occurrence: FR)
  Receive Date: 20130311
  Receipt Date: 20130311
  Transmission Date: 20140127
  Serious: Yes (Hospitalization)
  Sender: FDA-Public Use
  Company Number: FR-ROCHE-1199493

PATIENT
  Age: 50 Year
  Sex: Male
  Weight: 82 kg

DRUGS (10)
  1. INTERFERON ALFA-2A [Suspect]
     Indication: HEPATITIS C
     Route: 058
     Dates: start: 1996, end: 2005
  2. RIBAVIRIN [Suspect]
     Indication: HEPATITIS C
     Route: 048
     Dates: start: 1997, end: 2005
  3. PEGASYS [Suspect]
     Indication: PRODUCT USED FOR UNKNOWN INDICATION
     Route: 058
     Dates: start: 200506, end: 200512
  4. VIRAFERON [Suspect]
     Indication: PRODUCT USED FOR UNKNOWN INDICATION
     Route: 058
     Dates: start: 2001
  5. REBETOL [Suspect]
     Indication: PRODUCT USED FOR UNKNOWN INDICATION
     Route: 048
     Dates: start: 2001
  6. REBETOL [Suspect]
     Route: 048
     Dates: start: 2007
  7. LERCAN [Concomitant]
     Route: 065
  8. CLARITYNE [Concomitant]
     Route: 065
  9. AVLOCARDYL [Concomitant]
     Route: 065
  10. GLUCOR [Concomitant]
     Route: 065

REACTIONS (1)
  - Pulmonary arterial hypertension [Not Recovered/Not Resolved]
